FAERS Safety Report 5002390-8 (Version None)
Quarter: 2006Q2

REPORT INFORMATION
  Report Type: 
  Country: None (occurrence: None)
  Receive Date: 20060512
  Receipt Date: 20060428
  Transmission Date: 20061013
  Serious: Yes (Congenital Anomaly)
  Sender: FDA-Public Use
  Company Number: 2006RR-02168

PATIENT

DRUGS (6)
  1. FLUOXETINE [Suspect]
     Indication: DEPRESSION
     Dosage: 20 MG, QD, TRANSPLACENTAL
     Route: 064
     Dates: start: 20050721
  2. ESCITALOPRAM OXALATE [Concomitant]
  3. DIAZEPAM TABLETS (DIAZEPAM) TABLETS [Concomitant]
  4. FOLIC ACID [Concomitant]
  5. PEPTAC [Concomitant]
  6. CEFALEXIN CAPSULE 250MG BP (CEFALEXIN MONOHYDRATE) CAPSULE, 250 MG [Concomitant]

REACTIONS (2)
  - ANOTIA [None]
  - DRUG EXPOSURE DURING PREGNANCY [None]
